FAERS Safety Report 16746679 (Version 2)
Quarter: 2019Q3

REPORT INFORMATION
  Report Type: Spontaneous
  Country: IT (occurrence: IT)
  Receive Date: 20190827
  Receipt Date: 20190912
  Transmission Date: 20191005
  Serious: Yes (Other)
  Sender: FDA-Public Use
  Company Number: IT-SA-2019SA233356

PATIENT
  Age: 48 Year
  Sex: Female

DRUGS (2)
  1. ENOXAPARIN SODIUM. [Suspect]
     Active Substance: ENOXAPARIN SODIUM
     Indication: PRODUCT USED FOR UNKNOWN INDICATION
     Dosage: UNK UNK, UNK
     Route: 058
     Dates: start: 20190415, end: 20190422
  2. PARACETAMOL [Concomitant]
     Active Substance: ACETAMINOPHEN
     Indication: ANALGESIC THERAPY
     Dosage: UNK

REACTIONS (4)
  - Vasculitis [Unknown]
  - Arthralgia [Unknown]
  - Pyrexia [Unknown]
  - Erythema [Unknown]

NARRATIVE: CASE EVENT DATE: 20190424
